FAERS Safety Report 20623195 (Version 3)
Quarter: 2022Q2

REPORT INFORMATION
  Report Type: Spontaneous
  Country: CH (occurrence: CH)
  Receive Date: 20220322
  Receipt Date: 20220504
  Transmission Date: 20220721
  Serious: Yes (Other)
  Sender: FDA-Public Use
  Company Number: CH-TAKEDA-2022TUS005418

PATIENT
  Sex: Female

DRUGS (1)
  1. BRIGATINIB [Suspect]
     Active Substance: BRIGATINIB
     Indication: Non-small cell lung cancer
     Dosage: 180 MILLIGRAM
     Route: 065

REACTIONS (3)
  - Non-small cell lung cancer [Unknown]
  - Therapeutic product effect incomplete [Unknown]
  - Off label use [Unknown]
